FAERS Safety Report 7724496-2 (Version None)
Quarter: 2011Q3

REPORT INFORMATION
  Report Type: 
  Country: None (occurrence: None)
  Receive Date: 20110829
  Receipt Date: 20110815
  Transmission Date: 20111222
  Serious: Yes (Other)
  Sender: FDA-Public Use
  Company Number: AUR-APL-2011-04744

PATIENT
  Age: 62 Year
  Sex: Female
  Weight: 98.87 kg

DRUGS (5)
  1. HYDROCHLOROTHIAZIDE [Suspect]
     Indication: HYPERTENSION
     Dosage: 1 D,
  2. ATENOLOL [Concomitant]
  3. TRIAMTERENE [Concomitant]
  4. CHANTIX [Suspect]
     Indication: SMOKING CESSATION THERAPY
     Dosage: 0.5 MG (0.5 MG, 1 IN 1 D), ORAL; 2 MG, (1 MG, 2 IN 1 D), ORAL
     Route: 048
     Dates: start: 20110115, end: 20110101
  5. CHANTIX [Suspect]
     Indication: SMOKING CESSATION THERAPY
     Dosage: 0.5 MG (0.5 MG, 1 IN 1 D), ORAL; 2 MG, (1 MG, 2 IN 1 D), ORAL
     Route: 048
     Dates: start: 20110101, end: 20110420

REACTIONS (6)
  - DYSGEUSIA [None]
  - WEIGHT INCREASED [None]
  - BLOOD CHOLESTEROL INCREASED [None]
  - MALAISE [None]
  - DRUG INTERACTION [None]
  - BLOOD SODIUM DECREASED [None]
